FAERS Safety Report 16993888 (Version 1)
Quarter: 2019Q4

REPORT INFORMATION
  Report Type: Spontaneous
  Country: US (occurrence: US)
  Receive Date: 20191105
  Receipt Date: 20191105
  Transmission Date: 20200122
  Serious: No
  Sender: FDA-Public Use
  Company Number: US-ELI_LILLY_AND_COMPANY-US201911000368

PATIENT

DRUGS (2)
  1. FORTEO [Suspect]
     Active Substance: TERIPARATIDE
     Indication: OSTEOPOROSIS
     Dosage: 20 UG, BID
     Route: 058
     Dates: start: 20191017
  2. FORTEO [Suspect]
     Active Substance: TERIPARATIDE
     Indication: HYPERPARATHYROIDISM

REACTIONS (2)
  - Off label use [Unknown]
  - Prescribed overdose [Unknown]
